FAERS Safety Report 16474479 (Version 1)
Quarter: 2019Q2

REPORT INFORMATION
  Report Type: Spontaneous
  Country: US (occurrence: US)
  Receive Date: 20190625
  Receipt Date: 20190625
  Transmission Date: 20190711
  Serious: No
  Sender: FDA-Public Use
  Company Number: US-SUNOVION-2019SUN002572

PATIENT
  Age: 65 Year
  Sex: Male

DRUGS (1)
  1. LATUDA [Suspect]
     Active Substance: LURASIDONE HYDROCHLORIDE
     Indication: MAJOR DEPRESSION
     Dosage: 20 MG
     Route: 048

REACTIONS (4)
  - Off label use [Unknown]
  - Obsessive-compulsive disorder [Unknown]
  - Abnormal behaviour [Unknown]
  - Restless legs syndrome [Unknown]
